FAERS Safety Report 9451055 (Version 1)
Quarter: 2013Q3

REPORT INFORMATION
  Report Type: Spontaneous
  Country: JP (occurrence: JP)
  Receive Date: 20130809
  Receipt Date: 20130809
  Transmission Date: 20140515
  Serious: Yes (Other)
  Sender: FDA-Public Use
  Company Number: JP-009507513-1308JPN004198

PATIENT
  Sex: 0

DRUGS (2)
  1. JANUVIA TABLETS 100MG [Suspect]
     Route: 048
  2. AMARYL [Concomitant]
     Route: 048

REACTIONS (1)
  - Rhabdomyolysis [Unknown]
